FAERS Safety Report 8077299-6 (Version None)
Quarter: 2012Q1

REPORT INFORMATION
  Report Type: 
  Country: None (occurrence: None)
  Receive Date: 20120127
  Receipt Date: 20120113
  Transmission Date: 20120608
  Serious: Yes (Other)
  Sender: FDA-Public Use
  Company Number: CA-JNJFOC-20120111850

PATIENT
  Sex: Female
  Weight: 88 kg

DRUGS (1)
  1. REMICADE [Suspect]
     Indication: COLITIS ULCERATIVE
     Dosage: 13 INFUSIONS TO DATE
     Route: 042

REACTIONS (2)
  - HEPATIC CIRRHOSIS [None]
  - ENCEPHALITIS [None]
